FAERS Safety Report 24105248 (Version 1)
Quarter: 2024Q3

REPORT INFORMATION
  Report Type: Spontaneous
  Country: US (occurrence: None)
  Receive Date: 20240717
  Receipt Date: 20240717
  Transmission Date: 20241017
  Serious: Yes (Other)
  Sender: Public
  Company Number: None

PATIENT
  Age: 54 Year
  Sex: Male

DRUGS (1)
  1. REPATHA [Suspect]
     Active Substance: EVOLOCUMAB
     Indication: Type V hyperlipidaemia
     Dosage: FREQUENCY : EVERY OTHER WEEK;?

REACTIONS (7)
  - Pain [None]
  - Headache [None]
  - Sinusitis [None]
  - Dry mouth [None]
  - Dyspnoea [None]
  - Haemoptysis [None]
  - Ear infection [None]
